FAERS Safety Report 11711315 (Version 1)
Quarter: 2015Q4

REPORT INFORMATION
  Report Type: Spontaneous
  Country: US (occurrence: US)
  Receive Date: 20151104
  Receipt Date: 20151104
  Transmission Date: 20160304
  Serious: No
  Sender: FDA-Public Use
  Company Number: US-ELI_LILLY_AND_COMPANY-US201103008414

PATIENT
  Age: 58 Year
  Sex: Female
  Weight: 43.08 kg

DRUGS (1)
  1. FORTEO [Suspect]
     Active Substance: TERIPARATIDE
     Indication: OSTEOPOROSIS
     Dosage: 20 UG, QD
     Route: 065
     Dates: start: 20110324, end: 20110412

REACTIONS (20)
  - Feeling abnormal [Not Recovered/Not Resolved]
  - Injection site erythema [Not Recovered/Not Resolved]
  - Headache [Unknown]
  - Insomnia [Not Recovered/Not Resolved]
  - Bone pain [Unknown]
  - Middle insomnia [Unknown]
  - Arthralgia [Not Recovered/Not Resolved]
  - Pain in extremity [Unknown]
  - Pain [Not Recovered/Not Resolved]
  - Back pain [Unknown]
  - Arthralgia [Unknown]
  - Pain [Not Recovered/Not Resolved]
  - Musculoskeletal discomfort [Unknown]
  - Musculoskeletal pain [Not Recovered/Not Resolved]
  - Myalgia [Unknown]
  - Performance status decreased [Unknown]
  - Osteitis [Unknown]
  - Musculoskeletal chest pain [Not Recovered/Not Resolved]
  - Intentional product misuse [Unknown]
  - Dizziness [Unknown]

NARRATIVE: CASE EVENT DATE: 20110324
